FAERS Safety Report 19401262 (Version 4)
Quarter: 2022Q2

REPORT INFORMATION
  Report Type: Spontaneous
  Country: US (occurrence: US)
  Receive Date: 20210610
  Receipt Date: 20220628
  Transmission Date: 20220720
  Serious: No
  Sender: FDA-Public Use
  Company Number: US-PFIZER INC-2021515860

PATIENT
  Age: 59 Year
  Sex: Female

DRUGS (1)
  1. XELJANZ XR [Suspect]
     Active Substance: TOFACITINIB CITRATE
     Indication: Rheumatoid arthritis
     Dosage: 11 MG, 1X/DAY
     Route: 048
     Dates: start: 202103

REACTIONS (5)
  - Headache [Unknown]
  - Thirst [Unknown]
  - Blood cholesterol increased [Unknown]
  - Depression [Unknown]
  - Discouragement [Unknown]

NARRATIVE: CASE EVENT DATE: 20210101
